FAERS Safety Report 6234486-7 (Version None)
Quarter: 2009Q2

REPORT INFORMATION
  Report Type: 
  Country: None (occurrence: None)
  Receive Date: 20090618
  Receipt Date: 20080815
  Transmission Date: 20091009
  Serious: No
  Sender: FDA-Public Use
  Company Number: US-BRISTOL-MYERS SQUIBB COMPANY-14304497

PATIENT
  Age: 59 Year
  Sex: Female
  Weight: 63 kg

DRUGS (1)
  1. SINEMET [Suspect]
     Dosage: 1 DOSAGEFORM = 1/2 TAB
     Route: 048

REACTIONS (2)
  - DEPERSONALISATION [None]
  - FEELING ABNORMAL [None]
